FAERS Safety Report 23919941 (Version 2)
Quarter: 2024Q3

REPORT INFORMATION
  Report Type: Spontaneous
  Country: US (occurrence: US)
  Receive Date: 20240530
  Receipt Date: 20240722
  Transmission Date: 20241016
  Serious: No
  Sender: PFIZER
  Company Number: US-PFIZER INC-202400181260

PATIENT
  Age: 31 Year
  Sex: Female

DRUGS (1)
  1. NURTEC ODT [Suspect]
     Active Substance: RIMEGEPANT SULFATE
     Indication: Migraine prophylaxis
     Dosage: 75 MG, ALTERNATE DAY (1 TABLET EVERY 48 HOURS)
     Route: 048

REACTIONS (1)
  - Therapeutic product effect decreased [Unknown]
